FAERS Safety Report 7163750-2 (Version None)
Quarter: 2010Q4

REPORT INFORMATION
  Report Type: 
  Country: None (occurrence: None)
  Receive Date: 20101215
  Receipt Date: 20100607
  Transmission Date: 20110411
  Serious: Yes (Other)
  Sender: FDA-Public Use
  Company Number: FR-PFIZER INC-2010073218

PATIENT
  Age: 39 Year
  Sex: Female

DRUGS (2)
  1. LYRICA [Suspect]
     Indication: NEUROLOGICAL SYMPTOM
     Dosage: UNK
     Route: 048
     Dates: start: 20080401, end: 20080510
  2. EFFEXOR [Suspect]
     Dosage: UNK
     Route: 048

REACTIONS (1)
  - ABORTION SPONTANEOUS [None]
